FAERS Safety Report 8759762 (Version 1)
Quarter: 2012Q4

REPORT INFORMATION
  Report Type: Report from Study
  Country: JP (occurrence: JP)
  Receive Date: 20120829
  Receipt Date: 20120829
  Transmission Date: 20130627
  Serious: Yes (Hospitalization)
  Sender: FDA-Public Use
  Company Number: JP-VERTEX PHARMACEUTICAL INC.-2012-020184

PATIENT
  Age: 43 Year
  Sex: Male

DRUGS (7)
  1. VX-950 [Suspect]
     Indication: HEPATITIS C
     Dosage: 2250 mg, qd
     Route: 048
     Dates: start: 20120210, end: 20120503
  2. VX-950 [Suspect]
     Dosage: 2250 mg, qd
     Route: 048
     Dates: end: 20120726
  3. RIBAVIRIN [Suspect]
     Indication: HEPATITIS C
     Dosage: 800 mg, qd
     Route: 048
     Dates: start: 20120210, end: 20120726
  4. PEGINTERFERON ALFA-2B [Suspect]
     Indication: HEPATITIS C
     Dosage: 1.5 UNK, UNK
     Route: 058
     Dates: start: 20120210, end: 20120720
  5. THYRADIN S [Concomitant]
     Dosage: 100 ?g, UNK
     Route: 048
  6. THYRADIN S [Concomitant]
     Dosage: 50 ?g, UNK
     Route: 048
  7. ALLEGRA [Concomitant]
     Dosage: 120 mg, qd
     Route: 048

REACTIONS (1)
  - Tenosynovitis [Recovered/Resolved]
